FAERS Safety Report 5597835-9 (Version None)
Quarter: 2007Q4

REPORT INFORMATION
  Report Type: 
  Country: None (occurrence: None)
  Receive Date: 20071221
  Receipt Date: 20070830
  Transmission Date: 20080405
  Serious: Yes (Other)
  Sender: FDA-Public Use
  Company Number: US-2007-032701

PATIENT
  Age: 45 Year
  Sex: Female
  Weight: 63.5 kg

DRUGS (2)
  1. CLIMARA PRO [Suspect]
     Indication: MENOPAUSAL SYMPTOMS
     Dosage: 0.045/0.015 UG/DAY, CONT, TRANSDERMAL
     Route: 062
     Dates: start: 20061101
  2. PROTONIX [Concomitant]

REACTIONS (1)
  - ALOPECIA [None]
